FAERS Safety Report 4653112-1 (Version None)
Quarter: 2005Q2

REPORT INFORMATION
  Report Type: 
  Country: None (occurrence: None)
  Receive Date: 20050502
  Receipt Date: 20050502
  Transmission Date: 20051028
  Serious: Yes (Life-Threatening)
  Sender: FDA-Public Use
  Company Number: None

PATIENT
  Age: 50 Year
  Sex: Male
  Weight: 94.3482 kg

DRUGS (6)
  1. ELOXATIN [Suspect]
     Indication: COLON CANCER
     Dosage: 187MG  IV  EVERY OTHER WK
     Route: 042
     Dates: start: 20041206, end: 20050310
  2. LEUCOVORIN CALCIUM [Concomitant]
  3. FLUOROURACIL [Concomitant]
  4. CALCIUM GLUCONATE [Concomitant]
  5. MAGNESIUM SULFATE [Concomitant]
  6. AVASTIN [Concomitant]

REACTIONS (6)
  - BLOOD PRESSURE INCREASED [None]
  - DYSARTHRIA [None]
  - FEELING ABNORMAL [None]
  - FLUSHING [None]
  - MUSCLE TWITCHING [None]
  - POOR PERIPHERAL CIRCULATION [None]
